FAERS Safety Report 19284149 (Version 1)
Quarter: 2021Q2

REPORT INFORMATION
  Report Type: Spontaneous
  Country: US (occurrence: US)
  Receive Date: 20210521
  Receipt Date: 20210521
  Transmission Date: 20210717
  Serious: No
  Sender: FDA-Public Use
  Company Number: None

PATIENT
  Age: 46 Year
  Sex: Female
  Weight: 67.5 kg

DRUGS (1)
  1. LATUDA [Suspect]
     Active Substance: LURASIDONE HYDROCHLORIDE
     Indication: BIPOLAR DISORDER
     Dates: start: 20141101, end: 20141115

REACTIONS (3)
  - Feeling of despair [None]
  - Suicidal ideation [None]
  - Product dose omission in error [None]

NARRATIVE: CASE EVENT DATE: 20141115
